FAERS Safety Report 4823981-0 (Version None)
Quarter: 2005Q4

REPORT INFORMATION
  Report Type: 
  Country: None (occurrence: None)
  Receive Date: 20051109
  Receipt Date: 20051031
  Transmission Date: 20060501
  Serious: Yes (Hospitalization, Other)
  Sender: FDA-Public Use
  Company Number: CA-JNJFOC-20050902021

PATIENT
  Sex: Female
  Weight: 67 kg

DRUGS (4)
  1. REMICADE [Suspect]
     Indication: RHEUMATOID ARTHRITIS
     Route: 042
  2. METHOTREXATE [Concomitant]
     Route: 058
  3. PLAQUENIL [Concomitant]
     Route: 048
  4. NAPROSYN [Concomitant]
     Route: 048

REACTIONS (3)
  - DIABETES MELLITUS [None]
  - NAUSEA [None]
  - VOMITING [None]
